FAERS Safety Report 4728748-X (Version None)
Quarter: 2005Q3

REPORT INFORMATION
  Report Type: 
  Country: None (occurrence: None)
  Receive Date: 20050729
  Receipt Date: 20040127
  Transmission Date: 20060218
  Serious: Yes (Other)
  Sender: FDA-Public Use
  Company Number: ES-GLAXOSMITHKLINE-B0321501A

PATIENT
  Age: 49 Year
  Sex: Male

DRUGS (1)
  1. ZYNTABAC [Suspect]
     Dosage: 300MG PER DAY
     Dates: start: 20031130, end: 20031218

REACTIONS (8)
  - AKINESIA [None]
  - DYSKINESIA [None]
  - DYSPHONIA [None]
  - HYPOKINESIA [None]
  - MASKED FACIES [None]
  - MONOPLEGIA [None]
  - MUSCULOSKELETAL STIFFNESS [None]
  - PARKINSONISM [None]
